FAERS Safety Report 13686919 (Version 2)
Quarter: 2017Q2

REPORT INFORMATION
  Report Type: Spontaneous
  Country: FR (occurrence: FR)
  Receive Date: 20170623
  Receipt Date: 20170627
  Transmission Date: 20170830
  Serious: Yes (Death, Congenital Anomaly)
  Sender: FDA-Public Use
  Company Number: FR-SA-2017SA112010

PATIENT
  Sex: Female

DRUGS (14)
  1. ASPEGIC [Suspect]
     Active Substance: ASPIRIN DL-LYSINE
     Route: 064
     Dates: end: 20150818
  2. NEORAL [Suspect]
     Active Substance: CYCLOSPORINE
     Route: 064
     Dates: start: 20150220, end: 20150818
  3. TRIATEC [Suspect]
     Active Substance: RAMIPRIL
     Route: 064
     Dates: end: 20150220
  4. INEGY [Suspect]
     Active Substance: EZETIMIBE\SIMVASTATIN
     Route: 064
     Dates: end: 20150220
  5. PROZAC [Suspect]
     Active Substance: FLUOXETINE HYDROCHLORIDE
     Route: 064
     Dates: end: 20150818
  6. APROVEL [Suspect]
     Active Substance: IRBESARTAN
     Route: 064
     Dates: end: 20150220
  7. INSULIN [Suspect]
     Active Substance: INSULIN NOS
     Route: 064
     Dates: start: 20150220, end: 20150818
  8. SODIUM BICARBONATE. [Suspect]
     Active Substance: SODIUM BICARBONATE
     Route: 064
     Dates: start: 20150220, end: 20150818
  9. TARDYFERON [Suspect]
     Active Substance: FERROUS SULFATE
     Route: 064
     Dates: end: 20150818
  10. ATARAX [Suspect]
     Active Substance: HYDROXYZINE HYDROCHLORIDE
     Route: 064
     Dates: start: 20150220, end: 20150818
  11. ZYMAD [Suspect]
     Active Substance: CHOLECALCIFEROL
     Route: 064
     Dates: end: 20150818
  12. ROVAMYCINE [Suspect]
     Active Substance: SPIRAMYCIN
     Route: 064
     Dates: end: 20150818
  13. PRIMPERAN [Suspect]
     Active Substance: METOCLOPRAMIDE HYDROCHLORIDE
     Route: 064
     Dates: start: 20150220, end: 20150818
  14. SPIRONOLACTONE. [Suspect]
     Active Substance: SPIRONOLACTONE
     Route: 064
     Dates: end: 20150220

REACTIONS (4)
  - Dysmorphism [Not Recovered/Not Resolved]
  - Talipes [Not Recovered/Not Resolved]
  - Foetal exposure during pregnancy [Unknown]
  - Congenital musculoskeletal anomaly [Not Recovered/Not Resolved]
